FAERS Safety Report 9625653 (Version 1)
Quarter: 2013Q4

REPORT INFORMATION
  Report Type: Spontaneous
  Country: DK (occurrence: DK)
  Receive Date: 20131016
  Receipt Date: 20131016
  Transmission Date: 20140711
  Serious: Yes (Other)
  Sender: FDA-Public Use
  Company Number: DK-ROXANE LABORATORIES, INC.-2013-RO-01674RO

PATIENT
  Age: 58 Year
  Sex: Female

DRUGS (3)
  1. LITHIUM CARBONATE [Suspect]
     Indication: BIPOLAR II DISORDER
     Dosage: 562 MG
     Dates: start: 201009
  2. VALPROATE [Suspect]
     Indication: BIPOLAR II DISORDER
     Dosage: 1500 MG
  3. CLOZAPINE [Suspect]
     Indication: BIPOLAR II DISORDER
     Dosage: 200 MG

REACTIONS (3)
  - Weight increased [Unknown]
  - Oedema [Unknown]
  - Drug level fluctuating [Unknown]
